FAERS Safety Report 6340744-8 (Version None)
Quarter: 2009Q3

REPORT INFORMATION
  Report Type: 
  Country: None (occurrence: None)
  Receive Date: 20090904
  Receipt Date: 20090728
  Transmission Date: 20100115
  Serious: Yes (Hospitalization, Other)
  Sender: FDA-Public Use
  Company Number: US-BAXTER-2009BH012131

PATIENT
  Age: 7 Month
  Sex: Male
  Weight: 8 kg

DRUGS (5)
  1. ADVATE [Suspect]
     Indication: FACTOR VIII DEFICIENCY
     Route: 042
     Dates: start: 20070705, end: 20070706
  2. ADVATE [Suspect]
     Route: 042
     Dates: start: 20070707, end: 20070709
  3. ADVATE [Suspect]
     Route: 042
     Dates: start: 20070709, end: 20070716
  4. ADVATE [Suspect]
     Route: 042
     Dates: start: 20070717, end: 20070717
  5. ADVATE [Suspect]
     Route: 042
     Dates: start: 20070717, end: 20070719

REACTIONS (2)
  - FACTOR VIII INHIBITION [None]
  - RENAL HAEMATOMA [None]
